FAERS Safety Report 4597009-4 (Version None)
Quarter: 2005Q1

REPORT INFORMATION
  Report Type: 
  Country: None (occurrence: None)
  Receive Date: 20050228
  Receipt Date: 20050205
  Transmission Date: 20050727
  Serious: Yes (Other)
  Sender: FDA-Public Use
  Company Number: 2005016366

PATIENT
  Sex: Female
  Weight: 74.8435 kg

DRUGS (4)
  1. CELEBREX [Suspect]
     Indication: ARTHRITIS
     Dosage: 200 MG (200 MG, 1 IN 1 D), ORAL
     Route: 048
     Dates: end: 20040501
  2. BEXTRA [Suspect]
     Indication: ARTHRITIS
     Dosage: 20 MG (20 MG, PRN), ORAL
     Route: 048
     Dates: start: 20040501, end: 20040801
  3. EVISTA [Concomitant]
  4. CALCIUM (CALCIUM) [Concomitant]

REACTIONS (6)
  - CONTUSION [None]
  - DRUG INEFFECTIVE [None]
  - GASTROOESOPHAGEAL REFLUX DISEASE [None]
  - SKIN ATROPHY [None]
  - SKIN HAEMORRHAGE [None]
  - STOMACH DISCOMFORT [None]
